FAERS Safety Report 7313663-8 (Version None)
Quarter: 2011Q1

REPORT INFORMATION
  Report Type: 
  Country: None (occurrence: None)
  Receive Date: 20110225
  Receipt Date: 20110217
  Transmission Date: 20110831
  Serious: Yes (Other)
  Sender: FDA-Public Use
  Company Number: US-PFIZER INC-2009291581

PATIENT
  Sex: Male
  Weight: 85.261 kg

DRUGS (11)
  1. SUTENT [Suspect]
     Indication: RENAL CELL CARCINOMA
     Dosage: 50 MG, 1X/DAY
     Route: 048
     Dates: end: 20100101
  2. MORPHINE [Concomitant]
     Indication: PAIN
     Dosage: 30 MG, 2X/DAY
     Route: 048
  3. GLIPIZIDE [Concomitant]
     Indication: DIABETES MELLITUS
     Dosage: 5 MG, UNK
     Route: 048
  4. SUTENT [Suspect]
     Indication: METASTATIC RENAL CELL CARCINOMA
     Dosage: 50 MG, 1X/DAY 4-2 CYCLE
     Route: 048
     Dates: start: 20090901
  5. DOXAZOSIN [Concomitant]
     Indication: HYPERTENSION
     Dosage: 2 MG, 1X/DAY
     Route: 048
  6. SUTENT [Suspect]
     Indication: METASTASES TO LUNG
  7. OXYCODONE [Concomitant]
     Indication: PAIN
     Dosage: UNK
     Route: 048
  8. LEVOTHYROXINE [Concomitant]
     Indication: THYROID DISORDER
     Dosage: 125 UG, 1X/DAY
     Route: 048
  9. LANTUS [Concomitant]
     Indication: DIABETES MELLITUS
     Dosage: 10 ML, UNK
  10. SUTENT [Suspect]
     Indication: METASTASES TO LIVER
  11. ATENOLOL [Concomitant]
     Indication: HYPERTENSION
     Dosage: 100 MG, 1X/DAY
     Route: 048

REACTIONS (9)
  - BLOOD PRESSURE INCREASED [None]
  - CONTUSION [None]
  - HAEMANGIOMA [None]
  - NEOPLASM [None]
  - SKIN EXFOLIATION [None]
  - NEOPLASM MALIGNANT [None]
  - HAEMOPTYSIS [None]
  - CHROMATURIA [None]
  - HYPOTHYROIDISM [None]
